FAERS Safety Report 7685877-9 (Version None)
Quarter: 2011Q3

REPORT INFORMATION
  Report Type: 
  Country: None (occurrence: None)
  Receive Date: 20110815
  Receipt Date: 20110815
  Transmission Date: 20111222
  Serious: No
  Sender: FDA-Public Use
  Company Number: None

PATIENT
  Age: 48 Year
  Sex: Female
  Weight: 89.8122 kg

DRUGS (2)
  1. METHYPREDNISONE 4 MG [Concomitant]
  2. CEPHALEXIN [Suspect]
     Indication: BREAST DISCHARGE
     Dosage: 3 X'S A DAY
     Dates: start: 20110712

REACTIONS (3)
  - DYSPNOEA [None]
  - OEDEMA PERIPHERAL [None]
  - SOMNOLENCE [None]
